APPROVED DRUG PRODUCT: TRIZIVIR
Active Ingredient: ABACAVIR SULFATE; LAMIVUDINE; ZIDOVUDINE
Strength: EQ 300MG BASE;150MG;300MG **Federal Register determination that product was not discontinued or withdrawn for safety or effectiveness reasons**
Dosage Form/Route: TABLET;ORAL
Application: N021205 | Product #001
Applicant: VIIV HEALTHCARE CO
Approved: Nov 14, 2000 | RLD: Yes | RS: No | Type: DISCN